FAERS Safety Report 5744826-0 (Version None)
Quarter: 2008Q2

REPORT INFORMATION
  Report Type: 
  Country: None (occurrence: None)
  Receive Date: 20080520
  Receipt Date: 20080512
  Transmission Date: 20081010
  Serious: Yes (Hospitalization)
  Sender: FDA-Public Use
  Company Number: ES-PFIZER INC-2008041002

PATIENT
  Age: 80 Year
  Sex: Female

DRUGS (2)
  1. CELECOXIB [Suspect]
     Indication: SCIATICA
     Route: 048
     Dates: start: 20071119, end: 20071121
  2. BUPRENORPHINE HCL [Suspect]
     Indication: SCIATICA
     Route: 062
     Dates: start: 20071119, end: 20071121

REACTIONS (1)
  - CONFUSIONAL STATE [None]
